FAERS Safety Report 15051537 (Version 10)
Quarter: 2019Q4

REPORT INFORMATION
  Report Type: Report from Study
  Country: None (occurrence: US)
  Receive Date: 20180622
  Receipt Date: 20191230
  Transmission Date: 20200122
  Serious: Yes (Hospitalization, Other)
  Sender: FDA-Public Use
  Company Number: US-ABBVIE-17K-163-2107310-00

PATIENT
  Age: 75 Year
  Sex: Female
  Weight: 52.21 kg

DRUGS (18)
  1. IRON [Concomitant]
     Active Substance: IRON
     Indication: MALABSORPTION
  2. LUTEIN [Concomitant]
     Active Substance: LUTEIN
     Indication: EYE DISORDER PROPHYLAXIS
     Route: 065
  3. VITAMIN B12 [Concomitant]
     Active Substance: CYANOCOBALAMIN
     Indication: MALABSORPTION
  4. HUMIRA [Suspect]
     Active Substance: ADALIMUMAB
     Indication: CROHN^S DISEASE
     Route: 058
     Dates: start: 20170626, end: 20170626
  5. VITAMIN B12 [Concomitant]
     Active Substance: CYANOCOBALAMIN
     Indication: VITAMIN B12 DEFICIENCY
  6. CALCIUM [Concomitant]
     Active Substance: CALCIUM
     Indication: OSTEOPENIA
  7. HUMIRA [Suspect]
     Active Substance: ADALIMUMAB
     Route: 058
     Dates: start: 20170724, end: 20180514
  8. PREDNISONE. [Suspect]
     Active Substance: PREDNISONE
     Indication: GASTROINTESTINAL INFLAMMATION
     Route: 048
     Dates: start: 2017, end: 2017
  9. VITAMIN D [Concomitant]
     Active Substance: VITAMIN D NOS
     Indication: VITAMIN D DEFICIENCY
  10. VITAMIN C [Concomitant]
     Active Substance: ASCORBIC ACID
     Indication: VITAMIN SUPPLEMENTATION
  11. HUMIRA [Suspect]
     Active Substance: ADALIMUMAB
     Route: 058
     Dates: start: 201806, end: 201904
  12. HUMIRA [Suspect]
     Active Substance: ADALIMUMAB
     Indication: CROHN^S DISEASE
     Route: 058
     Dates: start: 201904
  13. PREDNISONE. [Suspect]
     Active Substance: PREDNISONE
     Indication: INTESTINAL STENOSIS
     Route: 048
     Dates: start: 2017, end: 2017
  14. IRON [Concomitant]
     Active Substance: IRON
     Indication: IRON DEFICIENCY
  15. HUMIRA [Suspect]
     Active Substance: ADALIMUMAB
     Route: 058
     Dates: start: 20170710, end: 20170710
  16. PREDNISONE. [Suspect]
     Active Substance: PREDNISONE
     Indication: ABDOMINAL PAIN
     Route: 048
     Dates: start: 2017, end: 2017
  17. MULTIVITAMIN [Concomitant]
     Active Substance: VITAMINS
     Indication: VITAMIN SUPPLEMENTATION
  18. OSTEO BI-FLEX [Concomitant]
     Active Substance: CHONDROITIN SULFATE A\GLUCOSAMINE
     Indication: ARTHRITIS

REACTIONS (26)
  - Gastrointestinal inflammation [Recovered/Resolved]
  - Incorrect dose administered [Unknown]
  - Gastrointestinal obstruction [Recovered/Resolved]
  - Injection site haemorrhage [Not Recovered/Not Resolved]
  - Blood iron decreased [Not Recovered/Not Resolved]
  - Hypophagia [Recovering/Resolving]
  - Nasopharyngitis [Not Recovered/Not Resolved]
  - Injection site bruising [Recovering/Resolving]
  - Abdominal pain [Recovered/Resolved]
  - Intestinal stenosis [Recovered/Resolved]
  - Crohn^s disease [Recovered/Resolved]
  - Cough [Unknown]
  - Post procedural diarrhoea [Not Recovered/Not Resolved]
  - Injection site bruising [Recovered/Resolved]
  - Injection site pain [Recovered/Resolved]
  - Diarrhoea [Not Recovered/Not Resolved]
  - Intestinal stenosis [Unknown]
  - Weight decreased [Unknown]
  - Device issue [Unknown]
  - Gastrointestinal pain [Recovering/Resolving]
  - Rhinorrhoea [Unknown]
  - Crohn^s disease [Recovered/Resolved]
  - Abdominal adhesions [Recovering/Resolving]
  - Nausea [Recovering/Resolving]
  - Drug ineffective [Not Recovered/Not Resolved]
  - Abdominal pain [Recovering/Resolving]

NARRATIVE: CASE EVENT DATE: 2017
